FAERS Safety Report 17170794 (Version 1)
Quarter: 2019Q4

REPORT INFORMATION
  Report Type: Spontaneous
  Country: FR (occurrence: FR)
  Receive Date: 20191218
  Receipt Date: 20191218
  Transmission Date: 20200122
  Serious: Yes (Hospitalization)
  Sender: FDA-Public Use
  Company Number: NVSC2019FR067884

PATIENT
  Age: 74 Year
  Sex: Male

DRUGS (4)
  1. ESIDREX [Suspect]
     Active Substance: HYDROCHLOROTHIAZIDE
     Indication: WRONG DRUG
     Dosage: UNK
     Route: 065
     Dates: start: 20191030, end: 20191030
  2. LEVETIRACETAM ARROW [Suspect]
     Active Substance: LEVETIRACETAM
     Indication: WRONG DRUG
     Dosage: UNK
     Route: 065
     Dates: start: 20191030, end: 20191030
  3. LERCANIDIPINE [Suspect]
     Active Substance: LERCANIDIPINE
     Indication: PRODUCT USED FOR UNKNOWN INDICATION
     Dosage: UNK
     Route: 065
     Dates: start: 20191030, end: 20191030
  4. CANDESARTAN SANDOZ [Suspect]
     Active Substance: CANDESARTAN
     Indication: WRONG DRUG
     Dosage: UNK
     Route: 065
     Dates: start: 20191030, end: 20191030

REACTIONS (2)
  - Somnolence [Recovered/Resolved]
  - Wrong patient received product [Recovered/Resolved]

NARRATIVE: CASE EVENT DATE: 20191030
